FAERS Safety Report 5511447-4 (Version None)
Quarter: 2007Q4

REPORT INFORMATION
  Report Type: 
  Country: None (occurrence: None)
  Receive Date: 20071109
  Receipt Date: 20071108
  Transmission Date: 20080405
  Serious: Yes (Death, Hospitalization)
  Sender: FDA-Public Use
  Company Number: FR-JNJFOC-20071102497

PATIENT
  Age: 67 Year

DRUGS (4)
  1. HALDOL [Suspect]
     Indication: DRUG USE FOR UNKNOWN INDICATION
  2. CLOZAPINE [Suspect]
     Indication: DRUG USE FOR UNKNOWN INDICATION
  3. THIORIDAZINE [Suspect]
     Indication: DRUG USE FOR UNKNOWN INDICATION
  4. BENZATROPINE [Concomitant]
     Indication: DRUG USE FOR UNKNOWN INDICATION

REACTIONS (4)
  - GASTROINTESTINAL NECROSIS [None]
  - INTESTINAL PERFORATION [None]
  - PERITONITIS [None]
  - SYNCOPE [None]
